FAERS Safety Report 10754082 (Version 2)
Quarter: 2015Q1

REPORT INFORMATION
  Report Type: Report from Study
  Country: DE (occurrence: DE)
  Receive Date: 20150202
  Receipt Date: 20150304
  Transmission Date: 20150721
  Serious: Yes (Hospitalization)
  Sender: FDA-Public Use
  Company Number: DE-BEH-2015048167

PATIENT
  Age: 56 Year
  Sex: Male
  Weight: 75 kg

DRUGS (4)
  1. ZOMETA [Concomitant]
     Active Substance: ZOLEDRONIC ACID
     Indication: PREMEDICATION
     Route: 042
     Dates: start: 20131028, end: 20131028
  2. PRIVIGEN [Suspect]
     Active Substance: HUMAN IMMUNOGLOBULIN G
     Indication: NON-HODGKIN^S LYMPHOMA
     Dosage: INFUSION RATE MIN. 1/MAX. 2 ML/MIN
     Route: 042
     Dates: start: 20140916, end: 20140916
  3. PRIVIGEN [Suspect]
     Active Substance: HUMAN IMMUNOGLOBULIN G
     Dosage: INFUSION RATE MIN. 1/MAX. 2 ML/MIN
     Route: 042
     Dates: start: 20141103, end: 20141103
  4. PRIVIGEN [Suspect]
     Active Substance: HUMAN IMMUNOGLOBULIN G
     Indication: SECONDARY IMMUNODEFICIENCY
     Dosage: INFUSION RATE MIN. 1/MAX. 2 ML/MIN
     Route: 042
     Dates: start: 20141014, end: 20141014

REACTIONS (6)
  - Malaise [Recovered/Resolved]
  - Cardiac discomfort [Recovered/Resolved]
  - Chest pain [Recovered/Resolved]
  - Off label use [None]
  - Angina unstable [Unknown]
  - Pain in extremity [Recovered/Resolved]

NARRATIVE: CASE EVENT DATE: 20141103
